FAERS Safety Report 6397497-7 (Version None)
Quarter: 2009Q4

REPORT INFORMATION
  Report Type: 
  Country: None (occurrence: None)
  Receive Date: 20091012
  Receipt Date: 20091009
  Transmission Date: 20100525
  Serious: Yes (Death)
  Sender: FDA-Public Use
  Company Number: PHHY2009JP43583

PATIENT
  Sex: Female

DRUGS (2)
  1. DIOVAN T30230+TAB+HY [Suspect]
     Indication: HYPERTENSION
     Dosage: 80 MG, QD
     Route: 048
     Dates: start: 20090130
  2. AMLODIPINE [Concomitant]
     Indication: HYPERTENSION
     Dosage: 15 MG, UNK
     Route: 048
     Dates: start: 20070202, end: 20090331

REACTIONS (1)
  - DEATH [None]
